FAERS Safety Report 6155270-9 (Version None)
Quarter: 2009Q2

REPORT INFORMATION
  Report Type: 
  Country: None (occurrence: None)
  Receive Date: 20090415
  Receipt Date: 20090409
  Transmission Date: 20091009
  Serious: Yes (Other)
  Sender: FDA-Public Use
  Company Number: US-ALLERGAN-0902667US

PATIENT
  Sex: Female

DRUGS (4)
  1. RESTASIS [Suspect]
     Indication: DRY EYE
     Dosage: UNK, UNK
     Route: 047
     Dates: start: 20080512, end: 20080501
  2. RESTASIS [Suspect]
     Dosage: UNK, BID
     Route: 047
     Dates: start: 20081118, end: 20081126
  3. PREDNISOLONE ACETATE [Suspect]
     Indication: DRUG USE FOR UNKNOWN INDICATION
  4. BANDAID CONTACT [Suspect]
     Indication: DRY EYE

REACTIONS (3)
  - EYE PAIN [None]
  - KERATITIS [None]
  - VISION BLURRED [None]
